FAERS Safety Report 9506307 (Version 1)
Quarter: 2013Q1

REPORT INFORMATION
  Report Type: Spontaneous
  Country: US (occurrence: None)
  Receive Date: 20130305
  Receipt Date: 20130305
  Transmission Date: 20140127
  Serious: Yes (Other)
  Sender: FDA-Public Use
  Company Number: 163-21880-12050430

PATIENT
  Age: 65 Year
  Sex: Male

DRUGS (4)
  1. REVLIMID (LENALIDOMIDE) (15 MILLIGRAM, CAPSULES) [Suspect]
     Indication: PLASMA CELL MYELOMA
     Dosage: 15 MG, 1 IN 1 D, PO
     Route: 048
     Dates: start: 200903
  2. METOPROLOL (METOPROLOL) [Concomitant]
  3. WARFARIN (WARFARIN) [Concomitant]
  4. PRAVASTATIN (PRAVASTATIN) [Concomitant]

REACTIONS (1)
  - Pancytopenia [None]
